FAERS Safety Report 23144837 (Version 1)
Quarter: 2023Q4

REPORT INFORMATION
  Report Type: Report from Study
  Country: US (occurrence: US)
  Receive Date: 20231103
  Receipt Date: 20231103
  Transmission Date: 20240110
  Serious: No
  Sender: FDA-Public Use
  Company Number: US-002147023-NVSC2023US230984

PATIENT
  Sex: Female
  Weight: 79.37 kg

DRUGS (2)
  1. COSENTYX [Suspect]
     Active Substance: SECUKINUMAB
     Indication: Psoriasis
     Dosage: 150 MG, QMO
     Route: 058
     Dates: start: 2019, end: 2021
  2. COSENTYX [Suspect]
     Active Substance: SECUKINUMAB
     Indication: Psoriatic arthropathy

REACTIONS (4)
  - Psoriasis [Recovering/Resolving]
  - Drug effect less than expected [Unknown]
  - Skin plaque [Unknown]
  - Skin exfoliation [Unknown]
